FAERS Safety Report 9845760 (Version 4)
Quarter: 2014Q2

REPORT INFORMATION
  Report Type: Spontaneous
  Country: US (occurrence: US)
  Receive Date: 20140127
  Receipt Date: 20140423
  Transmission Date: 20141212
  Serious: No
  Sender: FDA-Public Use
  Company Number: US-PFIZER INC-2014023612

PATIENT
  Age: 53 Year
  Sex: Female
  Weight: 77.1 kg

DRUGS (5)
  1. ZIPRASIDONE HCL [Suspect]
     Indication: PSYCHOTIC DISORDER
     Dosage: UNK
  2. GEODON [Suspect]
     Indication: PSYCHOTIC DISORDER
     Dosage: UNK
  3. DEPAKOTE [Suspect]
     Indication: PSYCHOTIC DISORDER
     Dosage: UNK
     Dates: start: 1999
  4. SAPHRIS [Suspect]
     Indication: PSYCHOTIC DISORDER
     Dosage: UNK
     Dates: end: 2013
  5. ZYPREXA [Suspect]
     Indication: PSYCHOTIC DISORDER
     Dosage: UNK

REACTIONS (4)
  - Weight increased [Unknown]
  - Thirst [Unknown]
  - Fluid retention [Unknown]
  - Blood pressure increased [Unknown]
